FAERS Safety Report 12771239 (Version 1)
Quarter: 2016Q3

REPORT INFORMATION
  Report Type: Spontaneous
  Country: GB (occurrence: GB)
  Receive Date: 20160922
  Receipt Date: 20160922
  Transmission Date: 20161109
  Serious: Yes (Disabling)
  Sender: FDA-Public Use
  Company Number: GB-FRESENIUS KABI-FK201606808

PATIENT
  Age: 74 Year
  Sex: Female

DRUGS (13)
  1. PAROXETINE. [Concomitant]
     Active Substance: PAROXETINE
     Indication: DEPRESSION
  2. LETROZOLE. [Concomitant]
     Active Substance: LETROZOLE
  3. LEVOFLOXACIN (MANUFACTURER UNKNOWN) [Suspect]
     Active Substance: LEVOFLOXACIN
     Indication: PNEUMONIA
     Route: 065
     Dates: start: 20160801, end: 20160807
  4. CLOPIDOGREL [Concomitant]
     Active Substance: CLOPIDOGREL BISULFATE
     Indication: CEREBROVASCULAR ACCIDENT
  5. SIMVASTATIN. [Concomitant]
     Active Substance: SIMVASTATIN
  6. THIAMINE. [Concomitant]
     Active Substance: THIAMINE
  7. IBUPROFEN. [Concomitant]
     Active Substance: IBUPROFEN
     Indication: PAIN
  8. PARACETAMOL [Concomitant]
     Active Substance: ACETAMINOPHEN
  9. PREGABALIN. [Concomitant]
     Active Substance: PREGABALIN
  10. SALBUTAMOL [Concomitant]
     Active Substance: ALBUTEROL
  11. TIOTROPIUM [Concomitant]
     Active Substance: TIOTROPIUM
  12. OMEPRAZOLE. [Concomitant]
     Active Substance: OMEPRAZOLE
  13. TRAMADOL. [Concomitant]
     Active Substance: TRAMADOL

REACTIONS (4)
  - Pain [Recovering/Resolving]
  - Tendonitis [Recovering/Resolving]
  - Balance disorder [Recovering/Resolving]
  - Depression [Recovering/Resolving]
